FAERS Safety Report 8605595 (Version 3)
Quarter: 2013Q3

REPORT INFORMATION
  Report Type: Report from Study
  Country: BE (occurrence: BE)
  Receive Date: 20120608
  Receipt Date: 20130820
  Transmission Date: 20140515
  Serious: Yes (Hospitalization)
  Sender: FDA-Public Use
  Company Number: BE-ABBOTT-12P-013-0940003-04

PATIENT
  Age: 78 Year
  Sex: Female

DRUGS (12)
  1. HUMIRA [Suspect]
     Indication: CROHN^S DISEASE
     Dosage: BASELINE
     Route: 058
     Dates: start: 20090115, end: 20090115
  2. HUMIRA [Suspect]
     Dosage: WEEK 2
     Route: 058
  3. HUMIRA [Suspect]
     Route: 058
     Dates: end: 20090901
  4. REMICADE [Concomitant]
     Indication: PRODUCT USED FOR UNKNOWN INDICATION
  5. IMMUNOSUPPRESSANTS [Concomitant]
     Indication: PRODUCT USED FOR UNKNOWN INDICATION
  6. ASAFLOW [Concomitant]
     Indication: PROPHYLAXIS
     Dates: start: 20060801
  7. CORUNO [Concomitant]
     Indication: CORONARY ARTERY BYPASS
     Dates: start: 20060801
  8. COVERSYL [Concomitant]
     Indication: PROPHYLAXIS
     Dates: start: 20070109
  9. ZOCOR [Concomitant]
     Indication: HYPERLIPIDAEMIA
     Dates: start: 2008
  10. DEANXIT [Concomitant]
     Indication: DEPRESSION
     Dates: start: 2008
  11. IMURAN [Concomitant]
     Indication: CROHN^S DISEASE
     Dates: start: 20090422
  12. ACLASTA [Concomitant]
     Indication: OSTEOPOROSIS
     Dosage: 5 MG/100 ML
     Dates: start: 2009

REACTIONS (1)
  - Aphasia [Not Recovered/Not Resolved]
